FAERS Safety Report 10216368 (Version 1)
Quarter: 2014Q2

REPORT INFORMATION
  Report Type: Spontaneous
  Country: US (occurrence: None)
  Receive Date: 20140603
  Receipt Date: 20140603
  Transmission Date: 20141212
  Serious: Yes (Disabling)
  Sender: FDA-Public Use
  Company Number: None

PATIENT
  Age: 59 Year
  Sex: Female
  Weight: 72.58 kg

DRUGS (1)
  1. CARNITOR 330 MG. CORE PHARMACEUTICALS [Suspect]
     Indication: CARNITINE DEFICIENCY
     Dosage: 2 PILLS?TWICE DAILY?TAKEN BY MOUTH
     Route: 048
     Dates: start: 20130603, end: 20140526

REACTIONS (3)
  - Product odour abnormal [None]
  - Malaise [None]
  - Product quality issue [None]
